FAERS Safety Report 8790543 (Version 1)
Quarter: 2012Q4

REPORT INFORMATION
  Report Type: Spontaneous
  Country: AU (occurrence: None)
  Receive Date: 20120905
  Receipt Date: 20120905
  Transmission Date: 20130627
  Serious: Yes (Other)
  Sender: FDA-Public Use
  Company Number: 2012-003160

PATIENT
  Age: 71 Year
  Sex: Female

DRUGS (2)
  1. ACTONEL COMBI D (RISEDRONATE SODIUM CALCIUM CARBONATE VITAMIN D3) EFFERVESCENT GRANULES, 35MG [Suspect]
     Route: 048
     Dates: start: 20110113, end: 201208
  2. ZOCOR [Concomitant]

REACTIONS (1)
  - Hydrocephalus [None]
